FAERS Safety Report 5457063-4 (Version None)
Quarter: 2007Q3

REPORT INFORMATION
  Report Type: 
  Country: None (occurrence: None)
  Receive Date: 20070918
  Receipt Date: 20061222
  Transmission Date: 20080115
  Serious: No
  Sender: FDA-Public Use
  Company Number: US-ASTRAZENECA-2006UW28460

PATIENT
  Age: 44 Year
  Sex: Female
  Weight: 103 kg

DRUGS (6)
  1. SEROQUEL [Suspect]
     Indication: ILL-DEFINED DISORDER
     Route: 048
  2. ADVAIR DISKUS 100/50 [Concomitant]
  3. SINGULAIR [Concomitant]
  4. COMBIVENT [Concomitant]
  5. NORVASC [Concomitant]
  6. PROZAC [Concomitant]

REACTIONS (1)
  - ILL-DEFINED DISORDER [None]
